FAERS Safety Report 9878185 (Version 1)
Quarter: 2014Q1

REPORT INFORMATION
  Report Type: Spontaneous
  Country: JP (occurrence: JP)
  Receive Date: 20140206
  Receipt Date: 20140206
  Transmission Date: 20141002
  Serious: Yes (Hospitalization)
  Sender: FDA-Public Use
  Company Number: JP-PFIZER INC-2014031225

PATIENT
  Sex: Female

DRUGS (1)
  1. JZOLOFT [Suspect]
     Dosage: 25 MG, 1X/DAY (BEFORE BEDTIME)
     Route: 048

REACTIONS (1)
  - Injury [Unknown]
